FAERS Safety Report 21125131 (Version 5)
Quarter: 2022Q3

REPORT INFORMATION
  Report Type: Report from Study
  Country: CA (occurrence: CA)
  Receive Date: 20220725
  Receipt Date: 20220927
  Transmission Date: 20221027
  Serious: Yes (Other)
  Sender: FDA-Public Use
  Company Number: CA-TAKEDA-2020TUS059530

PATIENT
  Age: 60 Year
  Sex: Female

DRUGS (4)
  1. VEDOLIZUMAB [Suspect]
     Active Substance: VEDOLIZUMAB
     Indication: Crohn^s disease
     Dosage: 300 MILLIGRAM
     Route: 042
     Dates: start: 20201204
  2. VEDOLIZUMAB [Suspect]
     Active Substance: VEDOLIZUMAB
     Dosage: 300 MILLIGRAM
     Route: 042
  3. VEDOLIZUMAB [Suspect]
     Active Substance: VEDOLIZUMAB
     Dosage: 300 MILLIGRAM, Q4WEEKS
     Route: 042
     Dates: start: 20220826
  4. ASACOL [Concomitant]
     Active Substance: MESALAMINE
     Dosage: 800 MILLIGRAM
     Dates: start: 2014

REACTIONS (5)
  - Crohn^s disease [Unknown]
  - Diarrhoea [Unknown]
  - Defaecation urgency [Unknown]
  - Stress [Unknown]
  - Off label use [Unknown]

NARRATIVE: CASE EVENT DATE: 20220826
